FAERS Safety Report 11238272 (Version 1)
Quarter: 2015Q3

REPORT INFORMATION
  Report Type: Spontaneous
  Country: CN (occurrence: CN)
  Receive Date: 20150704
  Receipt Date: 20150704
  Transmission Date: 20151125
  Serious: Yes (Other)
  Sender: FDA-Public Use
  Company Number: CN-SUN PHARMACEUTICAL INDUSTRIES LTD-2015R1-099619

PATIENT
  Age: 61 Year
  Sex: Male

DRUGS (1)
  1. ASPIRIN. [Suspect]
     Active Substance: ASPIRIN
     Indication: PRODUCT USED FOR UNKNOWN INDICATION
     Dosage: UNK
     Route: 048

REACTIONS (8)
  - Multi-organ failure [Unknown]
  - Klebsiella infection [Unknown]
  - Infection [Unknown]
  - Hepatotoxicity [Unknown]
  - Overdose [Unknown]
  - Peptic ulcer [Unknown]
  - Upper gastrointestinal haemorrhage [Unknown]
  - Pancreatitis acute [Unknown]
